FAERS Safety Report 6245335-5 (Version None)
Quarter: 2009Q2

REPORT INFORMATION
  Report Type: 
  Country: None (occurrence: None)
  Receive Date: 20090622
  Receipt Date: 20081103
  Transmission Date: 20091009
  Serious: Yes (Other)
  Sender: FDA-Public Use
  Company Number: WWISSUE-232

PATIENT
  Sex: Female

DRUGS (6)
  1. LITHIUM CARBONATE [Suspect]
  2. IBUPROFEN [Concomitant]
  3. SINVASTATIN [Concomitant]
  4. AMBIEN CR [Concomitant]
  5. TRI-SUDO [Concomitant]
  6. VITAMINS [Concomitant]

REACTIONS (1)
  - PALPITATIONS [None]
